FAERS Safety Report 11176963 (Version 1)
Quarter: 2015Q2

REPORT INFORMATION
  Report Type: Spontaneous
  Country: ZA (occurrence: ZA)
  Receive Date: 20150610
  Receipt Date: 20150610
  Transmission Date: 20150821
  Serious: Yes (Hospitalization)
  Sender: FDA-Public Use
  Company Number: ZA-ROCHE-1591137

PATIENT
  Age: 16 Year
  Sex: Male

DRUGS (1)
  1. SOMATROPIN [Suspect]
     Active Substance: SOMATROPIN
     Indication: GROWTH RETARDATION
     Route: 058
     Dates: start: 2014

REACTIONS (2)
  - Off label use [Unknown]
  - Juvenile idiopathic arthritis [Recovered/Resolved]
